FAERS Safety Report 17011540 (Version 1)
Quarter: 2019Q4

REPORT INFORMATION
  Report Type: Spontaneous
  Country: US (occurrence: US)
  Receive Date: 20191108
  Receipt Date: 20191108
  Transmission Date: 20200122
  Serious: No
  Sender: FDA-Public Use
  Company Number: US-GILEAD-2019-0436744

PATIENT
  Age: 47 Year
  Sex: Male

DRUGS (4)
  1. CAYSTON [Suspect]
     Active Substance: AZTREONAM
     Indication: CYSTIC FIBROSIS
     Dosage: 75 MG, TID
     Route: 055
  2. INCRUSE ELLIPTA [Concomitant]
     Active Substance: UMECLIDINIUM BROMIDE
  3. PULMOZYME [Concomitant]
     Active Substance: DORNASE ALFA
  4. SYMDEKO [Concomitant]
     Active Substance: IVACAFTOR\TEZACAFTOR

REACTIONS (1)
  - Off label use [Unknown]
